FAERS Safety Report 10543224 (Version 1)
Quarter: 2014Q4

REPORT INFORMATION
  Report Type: Spontaneous
  Country: US (occurrence: None)
  Receive Date: 20141024
  Receipt Date: 20141024
  Transmission Date: 20150529
  Serious: Yes (Life-Threatening)
  Sender: FDA-Public Use
  Company Number: None

PATIENT
  Age: 23 Year
  Sex: Male
  Weight: 74.84 kg

DRUGS (1)
  1. AMPHETAMINE [Suspect]
     Active Substance: AMPHETAMINE
     Indication: ATTENTION DEFICIT/HYPERACTIVITY DISORDER
     Dosage: 1 PILL
     Route: 048
     Dates: start: 20141020, end: 20141022

REACTIONS (7)
  - Heart rate irregular [None]
  - Blood pressure decreased [None]
  - Product substitution issue [None]
  - Headache [None]
  - Product quality issue [None]
  - Drug ineffective [None]
  - Nausea [None]

NARRATIVE: CASE EVENT DATE: 20141020
